APPROVED DRUG PRODUCT: HYDROCORTISONE BUTYRATE
Active Ingredient: HYDROCORTISONE BUTYRATE
Strength: 0.1%
Dosage Form/Route: OINTMENT;TOPICAL
Application: A076842 | Product #001 | TE Code: AB
Applicant: TARO PHARMACEUTICAL INDUSTRIES LTD
Approved: Dec 27, 2004 | RLD: No | RS: No | Type: RX